FAERS Safety Report 15614661 (Version 1)
Quarter: 2018Q4

REPORT INFORMATION
  Report Type: Spontaneous
  Country: US (occurrence: US)
  Receive Date: 20181113
  Receipt Date: 20181113
  Transmission Date: 20190205
  Serious: No
  Sender: FDA-Public Use
  Company Number: US-MYLANLABS-2018M1081303

PATIENT
  Age: 19 Year
  Sex: Female
  Weight: 64 kg

DRUGS (3)
  1. LIDOCAINE PATCH [Suspect]
     Active Substance: LIDOCAINE
     Dosage: UNK
  2. LIDOCAINE PATCH [Suspect]
     Active Substance: LIDOCAINE
     Indication: BACK PAIN
     Dosage: 1 UNK, UNK
     Route: 003
     Dates: start: 20181014
  3. TYLENOL [Concomitant]
     Active Substance: ACETAMINOPHEN
     Indication: PRODUCT USED FOR UNKNOWN INDICATION

REACTIONS (3)
  - Off label use [Not Recovered/Not Resolved]
  - Product quality issue [Unknown]
  - Product adhesion issue [Not Recovered/Not Resolved]

NARRATIVE: CASE EVENT DATE: 20181014
